FAERS Safety Report 6437060-2 (Version None)
Quarter: 2009Q4

REPORT INFORMATION
  Report Type: 
  Country: None (occurrence: None)
  Receive Date: 20091112
  Receipt Date: 20091105
  Transmission Date: 20100525
  Serious: Yes (Death)
  Sender: FDA-Public Use
  Company Number: GB-JNJFOC-20091102038

PATIENT
  Age: 45 Year
  Sex: Female

DRUGS (7)
  1. PARACETAMOL [Suspect]
  2. PARACETAMOL [Suspect]
     Indication: DRUG USE FOR UNKNOWN INDICATION
  3. TRAMADOL HCL [Suspect]
     Indication: DRUG USE FOR UNKNOWN INDICATION
  4. CODEINE [Suspect]
     Indication: DRUG USE FOR UNKNOWN INDICATION
  5. ORAMORPH SR [Suspect]
     Indication: DRUG USE FOR UNKNOWN INDICATION
  6. OXYNORM [Suspect]
     Indication: DRUG USE FOR UNKNOWN INDICATION
  7. TEMAZEPAM [Suspect]
     Indication: DRUG USE FOR UNKNOWN INDICATION

REACTIONS (2)
  - ABDOMINAL PAIN UPPER [None]
  - DRUG TOXICITY [None]
